FAERS Safety Report 19975220 (Version 3)
Quarter: 2022Q2

REPORT INFORMATION
  Report Type: Spontaneous
  Country: DE (occurrence: DE)
  Receive Date: 20211020
  Receipt Date: 20220415
  Transmission Date: 20220721
  Serious: Yes (Death, Hospitalization, Other)
  Sender: FDA-Public Use
  Company Number: DE-TEVA-2021-DE-1930097

PATIENT
  Age: 93 Year
  Sex: Female
  Weight: 42 kg

DRUGS (17)
  1. AMIODARONE [Suspect]
     Active Substance: AMIODARONE
     Indication: Product used for unknown indication
     Dosage: UNK, START DATE: 02-AUG-2019)
     Route: 065
  2. KETAMIN [Suspect]
     Active Substance: KETAMINE
     Indication: Anaesthesia
     Dosage: UNK
     Route: 065
  3. TRANEXAMIC ACID [Suspect]
     Active Substance: TRANEXAMIC ACID
     Indication: Product used for unknown indication
     Dosage: 1000 MILLIGRAM, QD (START AND STOP DATE: 02-AUG-2019)
     Route: 042
  4. ATROPINE [Suspect]
     Active Substance: ATROPINE
     Indication: Product used for unknown indication
     Dosage: UNK, 1 AMPOULE (START DATE:02-AUG-2019)
  5. ADRENALIN [Suspect]
     Active Substance: EPINEPHRINE
     Indication: Product used for unknown indication
     Dosage: 10 MICROGRAM, TID
  6. ADRENALIN [Suspect]
     Active Substance: EPINEPHRINE
     Dosage: 30 MICROGRAM, QD,10 MICROGRAM
  7. PANTOZOL [Suspect]
     Active Substance: PANTOPRAZOLE SODIUM
     Indication: Product used for unknown indication
     Dosage: 80 MILLIGRAM, QD (START DATE: 02-AUG-2019)
     Route: 042
  8. NOREPINEPHRINE HYDROCHLORIDE, (+/-)- [Suspect]
     Active Substance: NOREPINEPHRINE HYDROCHLORIDE, (+/-)-
     Indication: Product used for unknown indication
     Dosage: UNK, TOGETHER WITH NACL 0.9 PERCENT(START DATE: 02-AUG-2019)
  9. MIDAZOLAM [Suspect]
     Active Substance: MIDAZOLAM
     Indication: Anaesthesia
     Dosage: UNK, QD, (TOGETHER WITH NACL 0.9 PERCENT)START DATE: 02-AUG-2019
  10. SULTAMICILLIN TOSYLATE [Suspect]
     Active Substance: SULTAMICILLIN TOSYLATE
     Indication: Product used for unknown indication
     Dosage: 6 GRAM, QD
     Route: 042
  11. SULTAMICILLIN TOSYLATE [Suspect]
     Active Substance: SULTAMICILLIN TOSYLATE
     Dosage: 3 GRAM, QD
     Route: 042
  12. SUPRARENIN [Suspect]
     Active Substance: EPINEPHRINE
     Indication: Product used for unknown indication
     Dosage: UNK, 4 AMPOULES (START DATE: 02-AUG-2019)
  13. SUFENTA [Suspect]
     Active Substance: SUFENTANIL CITRATE
     Indication: Product used for unknown indication
     Dosage: UNK, TOGETHER WITH NACL 0.9 PERCENT(START DATE: 02-AUG-2019)
  14. TRANEXAMIC ACID [Suspect]
     Active Substance: TRANEXAMIC ACID
     Indication: Product used for unknown indication
     Dosage: 1000 MILLIGRAM, QD (START AND STOP DATE: 02-AUG-2019)
     Route: 042
  15. SODIUM BICARBONATE [Concomitant]
     Active Substance: SODIUM BICARBONATE
     Dosage: 400 MILLILITER, QD
  16. SODIUM CHLORIDE [Concomitant]
     Active Substance: SODIUM CHLORIDE
     Dosage: UNK
  17. RINGER LOESUNG [Concomitant]
     Dosage: 1500 MILLILITER, QD,1500 ML DAILY; AS PERMANENT DRIP (START DATE: 02-AUG-2019)
     Route: 042

REACTIONS (18)
  - Toxicity to various agents [Fatal]
  - Dysphonia [Fatal]
  - Ischaemia [Fatal]
  - Abdominal distension [Fatal]
  - Coagulopathy [Fatal]
  - Cardiogenic shock [Fatal]
  - Acidosis [Fatal]
  - Haemorrhage [Fatal]
  - Acute respiratory failure [Fatal]
  - Anaemia [Fatal]
  - Gastrointestinal haemorrhage [Fatal]
  - Aspiration [Fatal]
  - Ventricular fibrillation [Fatal]
  - Myocardial infarction [Fatal]
  - Haematemesis [Fatal]
  - Bundle branch block right [Fatal]
  - Hepatic failure [Fatal]
  - Cardiac arrest [Recovered/Resolved]

NARRATIVE: CASE EVENT DATE: 20190701
